FAERS Safety Report 9632758 (Version 1)
Quarter: 2013Q4

REPORT INFORMATION
  Report Type: Spontaneous
  Country: CO (occurrence: CO)
  Receive Date: 20131018
  Receipt Date: 20131018
  Transmission Date: 20140711
  Serious: Yes (Other)
  Sender: FDA-Public Use
  Company Number: CO-UCBSA-100223

PATIENT
  Age: 77 Year
  Sex: Female

DRUGS (3)
  1. NEUPRO [Suspect]
     Indication: PARKINSON^S DISEASE
     Dosage: DOSE: 8 MG
     Route: 062
     Dates: start: 201307, end: 20130919
  2. NEUPRO [Suspect]
     Indication: PARKINSON^S DISEASE
     Dosage: DOSE: 6 MG
     Route: 062
     Dates: start: 2013, end: 2013
  3. NEUPRO [Suspect]
     Indication: PARKINSON^S DISEASE
     Dosage: DOSE: 4 MG
     Route: 062
     Dates: start: 20130108, end: 2013

REACTIONS (2)
  - Application site vesicles [Unknown]
  - Application site burn [Unknown]
